FAERS Safety Report 7556692-1 (Version None)
Quarter: 2011Q2

REPORT INFORMATION
  Report Type: 
  Country: None (occurrence: None)
  Receive Date: 20110620
  Receipt Date: 20110608
  Transmission Date: 20111010
  Serious: Yes (Hospitalization)
  Sender: FDA-Public Use
  Company Number: CH-PFIZER INC-2011131262

PATIENT
  Age: 87 Year
  Sex: Female

DRUGS (4)
  1. CORDARONE [Suspect]
     Dosage: 100 MG , DAILY
     Dates: start: 20080101, end: 20110325
  2. FOSICOMP [Concomitant]
     Dosage: UNK
     Dates: end: 20110325
  3. ASPIRIN [Concomitant]
     Dosage: UNK
  4. LEVOTHYROXINE SODIUM [Interacting]
     Indication: HYPOTHYROIDISM
     Dosage: 0.1 MG, DAILY
     Dates: start: 19920101

REACTIONS (4)
  - DRUG INTERACTION [None]
  - HYPOTHYROIDISM [None]
  - MYXOEDEMA [None]
  - CARDIOMEGALY [None]
